FAERS Safety Report 12289787 (Version 1)
Quarter: 2016Q2

REPORT INFORMATION
  Report Type: Spontaneous
  Country: US (occurrence: None)
  Receive Date: 20160420
  Receipt Date: 20160420
  Transmission Date: 20160815
  Serious: Yes (Disabling)
  Sender: FDA-Public Use
  Company Number: None

PATIENT
  Age: 11 Year

DRUGS (10)
  1. MAGNESIUM [Concomitant]
     Active Substance: MAGNESIUM
  2. OMEPRAZOLE. [Concomitant]
     Active Substance: OMEPRAZOLE
  3. PROPOFOL. [Suspect]
     Active Substance: PROPOFOL
     Indication: ENDOSCOPY
     Dates: start: 20150330, end: 20150330
  4. FENTANYL. [Suspect]
     Active Substance: FENTANYL
     Indication: ENDOSCOPY
     Route: 042
     Dates: start: 20150330, end: 20150330
  5. VITAMIN B1 [Concomitant]
     Active Substance: THIAMINE HYDROCHLORIDE
  6. CLARITIN [Concomitant]
     Active Substance: LORATADINE
  7. XANAX [Concomitant]
     Active Substance: ALPRAZOLAM
  8. PROBIOTIC [Concomitant]
     Active Substance: PROBIOTICS NOS
  9. COQ10 [Concomitant]
     Active Substance: UBIDECARENONE
  10. VITAMIN D3 [Concomitant]
     Active Substance: CHOLECALCIFEROL

REACTIONS (22)
  - Anxiety [None]
  - Muscle spasms [None]
  - Hyperventilation [None]
  - Pain [None]
  - Screaming [None]
  - Somnolence [None]
  - Dizziness [None]
  - No therapeutic response [None]
  - Musculoskeletal disorder [None]
  - Loss of consciousness [None]
  - Retching [None]
  - Speech disorder [None]
  - Fear [None]
  - Stupor [None]
  - New daily persistent headache [None]
  - Dissociative amnesia [None]
  - Nervous system disorder [None]
  - Hallucination, visual [None]
  - Seizure like phenomena [None]
  - Tachycardia [None]
  - Asthenia [None]
  - Abnormal behaviour [None]

NARRATIVE: CASE EVENT DATE: 20150330
